FAERS Safety Report 15766846 (Version 1)
Quarter: 2018Q4

REPORT INFORMATION
  Report Type: Spontaneous
  Country: GB (occurrence: GB)
  Receive Date: 20181227
  Receipt Date: 20181227
  Transmission Date: 20190205
  Serious: Yes (Death)
  Sender: FDA-Public Use
  Company Number: GB-TEVA-2018-GB-991791

PATIENT
  Age: 74 Year
  Sex: Female

DRUGS (2)
  1. FENTANYL. [Suspect]
     Active Substance: FENTANYL
     Dosage: DOSE: 50X100UG
     Route: 065
     Dates: start: 19881103
  2. PL 00003/5022R CYCLIMORPH 10 INJECTION [Suspect]
     Active Substance: CYCLIZINE\MORPHINE TARTRATE
     Route: 065
     Dates: start: 19881103, end: 19881103

REACTIONS (3)
  - Potentiating drug interaction [Fatal]
  - Hypoxia [Fatal]
  - Brain oedema [Fatal]

NARRATIVE: CASE EVENT DATE: 19881103
